FAERS Safety Report 16386679 (Version 2)
Quarter: 2019Q3

REPORT INFORMATION
  Report Type: Report from Study
  Country: None (occurrence: FI)
  Receive Date: 20190604
  Receipt Date: 20190727
  Transmission Date: 20191004
  Serious: Yes (Hospitalization, Other)
  Sender: FDA-Public Use
  Company Number: FI-ABBVIE-19S-055-2806193-00

PATIENT
  Sex: Male

DRUGS (1)
  1. DUODOPA [Suspect]
     Active Substance: CARBIDOPA\LEVODOPA
     Indication: PRODUCT USED FOR UNKNOWN INDICATION
     Route: 050

REACTIONS (12)
  - General physical condition decreased [Unknown]
  - Skin wound [Recovering/Resolving]
  - Cerebral haemorrhage [Unknown]
  - Hallucination [Not Recovered/Not Resolved]
  - Fall [Recovering/Resolving]
  - Screaming [Unknown]
  - Hallucination [Recovered/Resolved]
  - Musculoskeletal stiffness [Not Recovered/Not Resolved]
  - Dyskinesia [Not Recovered/Not Resolved]
  - Aggression [Unknown]
  - Walking aid user [Not Recovered/Not Resolved]
  - Petit mal epilepsy [Recovered/Resolved]

NARRATIVE: CASE EVENT DATE: 201907
